FAERS Safety Report 19938324 (Version 1)
Quarter: 2021Q4

REPORT INFORMATION
  Report Type: Spontaneous
  Country: US (occurrence: US)
  Receive Date: 20211011
  Receipt Date: 20211011
  Transmission Date: 20220303
  Serious: No
  Sender: FDA-Public Use
  Company Number: US-ORGANON-O2109USA001107

PATIENT
  Age: 17 Year
  Sex: Female
  Weight: 73.65 kg

DRUGS (1)
  1. NEXPLANON [Suspect]
     Active Substance: ETONOGESTREL
     Dosage: 1 IMPLANT 68MG, EVERY 3 YEARS

REACTIONS (2)
  - Complication of device insertion [Not Recovered/Not Resolved]
  - Product quality issue [Unknown]
